FAERS Safety Report 9607353 (Version 1)
Quarter: 2013Q4

REPORT INFORMATION
  Report Type: Spontaneous
  Country: US (occurrence: None)
  Receive Date: 20131004
  Receipt Date: 20131004
  Transmission Date: 20140711
  Serious: Yes (Other)
  Sender: FDA-Public Use
  Company Number: 2013P1019676

PATIENT
  Sex: 0

DRUGS (1)
  1. OXYCODONE [Suspect]
     Indication: BACK PAIN
     Dosage: Q4-6H;PO
     Route: 048

REACTIONS (1)
  - Syncope [None]
